FAERS Safety Report 9276200 (Version 1)
Quarter: 2012Q4

REPORT INFORMATION
  Report Type: Spontaneous
  Country: US (occurrence: None)
  Receive Date: 20121012
  Receipt Date: 20121012
  Transmission Date: 20130627
  Serious: Yes (Hospitalization, Other)
  Sender: FDA-Public Use
  Company Number: 2012AP003287

PATIENT
  Age: 49 Year
  Sex: Male

DRUGS (8)
  1. SERTRALINE HYDROCHLORIDE TABLETS [Suspect]
     Indication: DRUG USE FOR UNKNOWN INDICATION
  2. ZOLINZA [Suspect]
     Indication: CUTANEOUS T-CELL LYMPHOMA
     Route: 048
  3. DOXEPIN [Suspect]
     Indication: DRUG USE FOR UNKNOWN INDICATION
     Dosage: HS
  4. HYDROCHLOROTHIAZIDE [Concomitant]
  5. NPH-INSULIN [Concomitant]
  6. INSULIN [Concomitant]
  7. NAPROXEN SODIUM [Concomitant]
  8. OXYCODONE [Concomitant]

REACTIONS (8)
  - Torsade de pointes [None]
  - Pericardial effusion [None]
  - Hypokalaemia [None]
  - Haematemesis [None]
  - Haematochezia [None]
  - Syncope [None]
  - Electrocardiogram T wave inversion [None]
  - Condition aggravated [None]
